FAERS Safety Report 8103907-7 (Version None)
Quarter: 2012Q1

REPORT INFORMATION
  Report Type: 
  Country: None (occurrence: None)
  Receive Date: 20120127
  Receipt Date: 20120120
  Transmission Date: 20120608
  Serious: Yes (Hospitalization, Other)
  Sender: FDA-Public Use
  Company Number: 2012010116

PATIENT
  Age: 57 Year
  Sex: Female

DRUGS (1)
  1. FENTANYL [Suspect]

REACTIONS (11)
  - PNEUMOTHORAX [None]
  - HYPOTENSION [None]
  - EMPHYSEMA [None]
  - GENERAL PHYSICAL HEALTH DETERIORATION [None]
  - UNRESPONSIVE TO STIMULI [None]
  - CEREBRAL ISCHAEMIA [None]
  - BRAIN DEATH [None]
  - APNOEA [None]
  - OVERDOSE [None]
  - CEREBRAL INFARCTION [None]
  - AREFLEXIA [None]
